FAERS Safety Report 4767584-5 (Version None)
Quarter: 2005Q3

REPORT INFORMATION
  Report Type: 
  Country: None (occurrence: None)
  Receive Date: 20050913
  Receipt Date: 20050506
  Transmission Date: 20060218
  Serious: Yes (Hospitalization)
  Sender: FDA-Public Use
  Company Number: US-MERCK-0505USA00870

PATIENT
  Age: 59 Year
  Sex: Male
  Weight: 102 kg

DRUGS (14)
  1. VIOXX [Suspect]
     Indication: OSTEOARTHRITIS
     Route: 048
     Dates: start: 20010101, end: 20040101
  2. INSULIN [Concomitant]
     Route: 065
  3. LASIX [Concomitant]
     Route: 065
     Dates: start: 19960101
  4. THEO-DUR [Concomitant]
     Route: 065
  5. LOPRESSOR [Concomitant]
     Route: 065
     Dates: start: 20000101
  6. COUMADIN [Concomitant]
     Route: 065
     Dates: start: 20000101
  7. MINIPRESS [Concomitant]
     Route: 065
  8. NORVASC [Concomitant]
     Route: 065
  9. LEVOTHYROXINE SODIUM [Concomitant]
     Indication: HYPOTHYROIDISM
     Route: 065
  10. ALLOPURINOL [Concomitant]
     Route: 065
  11. PENTOXIFYLLINE [Concomitant]
     Indication: EXOSTOSIS
     Route: 065
  12. NAPROXEN [Concomitant]
     Indication: PAIN
     Route: 065
  13. CYMBALTA [Concomitant]
     Route: 065
  14. NEURONTIN [Concomitant]
     Indication: BACK PAIN
     Route: 065

REACTIONS (21)
  - BLOOD GLUCOSE DECREASED [None]
  - BLOOD PRESSURE SYSTOLIC DECREASED [None]
  - CARDIAC FAILURE [None]
  - CARDIAC FAILURE CONGESTIVE [None]
  - CEREBROVASCULAR ACCIDENT [None]
  - DIABETES MELLITUS INADEQUATE CONTROL [None]
  - DIZZINESS [None]
  - ELECTROLYTE IMBALANCE [None]
  - HYPOGLYCAEMIA [None]
  - HYPONATRAEMIA [None]
  - HYPOTENSION [None]
  - LIPOMA [None]
  - LUNG INFECTION [None]
  - MYOCARDIAL INFARCTION [None]
  - NEPHROPATHY [None]
  - NEUROPATHY [None]
  - PNEUMONIA [None]
  - RENAL FAILURE CHRONIC [None]
  - RETINOPATHY [None]
  - SINUS ARRHYTHMIA [None]
  - TRANSAMINASES INCREASED [None]
